FAERS Safety Report 12801413 (Version 1)
Quarter: 2016Q4

REPORT INFORMATION
  Report Type: Spontaneous
  Country: FR (occurrence: FR)
  Receive Date: 20161003
  Receipt Date: 20161003
  Transmission Date: 20170207
  Serious: Yes (Death, Hospitalization)
  Sender: FDA-Public Use
  Company Number: FR-ROCHE-232584

PATIENT
  Age: 60 Year
  Sex: Male

DRUGS (10)
  1. LASILIX [Suspect]
     Active Substance: FUROSEMIDE
     Indication: PRODUCT USED FOR UNKNOWN INDICATION
     Route: 048
     Dates: start: 19991207, end: 19991214
  2. HALDOL [Suspect]
     Active Substance: HALOPERIDOL
     Indication: PRODUCT USED FOR UNKNOWN INDICATION
     Route: 048
     Dates: start: 19991207, end: 19991214
  3. KETALAR [Suspect]
     Active Substance: KETAMINE HYDROCHLORIDE
     Dosage: FOR 3 DAYS
     Route: 058
  4. CLIVARINE [Suspect]
     Active Substance: REVIPARIN SODIUM
     Indication: PRODUCT USED FOR UNKNOWN INDICATION
     Route: 058
     Dates: start: 19991207, end: 19991214
  5. MORPHINE [Concomitant]
     Active Substance: MORPHINE
  6. ROCEPHINE [Suspect]
     Active Substance: CEFTRIAXONE SODIUM
     Indication: PRODUCT USED FOR UNKNOWN INDICATION
     Route: 042
     Dates: start: 19991207, end: 19991218
  7. KETALAR [Suspect]
     Active Substance: KETAMINE HYDROCHLORIDE
     Indication: PAIN
     Route: 048
     Dates: start: 19991207, end: 19991212
  8. OMEPRAZOLE. [Suspect]
     Active Substance: OMEPRAZOLE
     Indication: PRODUCT USED FOR UNKNOWN INDICATION
     Route: 048
     Dates: start: 19991207, end: 19991214
  9. KETALAR [Suspect]
     Active Substance: KETAMINE HYDROCHLORIDE
     Route: 058
  10. KETALAR [Suspect]
     Active Substance: KETAMINE HYDROCHLORIDE
     Dosage: FOR 3 DAYS
     Route: 058

REACTIONS (7)
  - General physical health deterioration [Fatal]
  - Hepatic enzyme increased [Unknown]
  - Confusional state [Fatal]
  - Hepatocellular injury [None]
  - Hepatic steatosis [None]
  - Cholestasis [Fatal]
  - Hyponatraemia [None]

NARRATIVE: CASE EVENT DATE: 19991211
